FAERS Safety Report 5279819-3 (Version None)
Quarter: 2007Q1

REPORT INFORMATION
  Report Type: 
  Country: None (occurrence: None)
  Receive Date: 20061212
  Receipt Date: 20050505
  Transmission Date: 20070707
  Serious: Yes (Other)
  Sender: FDA-Public Use
  Company Number: 2005UW07020

PATIENT
  Age: 83 Year
  Sex: Female
  Weight: 54.431 kg

DRUGS (7)
  1. RHINOCORT AQUA [Suspect]
     Indication: APHONIA
     Dosage: 64 UG QD IN
     Route: 055
  2. RHINOCORT AQUA [Suspect]
     Indication: APHONIA
     Dosage: 128 UG QD IN
     Route: 055
  3. NASAL SALINE [Concomitant]
  4. SALINE GARGLE [Concomitant]
  5. PRILOSEC [Concomitant]
  6. ATENOLOL [Concomitant]
  7. LOVASTATIN [Concomitant]

REACTIONS (2)
  - ABDOMINAL PAIN UPPER [None]
  - MEDICATION ERROR [None]
